FAERS Safety Report 17864679 (Version 1)
Quarter: 2020Q2

REPORT INFORMATION
  Report Type: Spontaneous
  Country: US (occurrence: US)
  Receive Date: 20200604
  Receipt Date: 20200604
  Transmission Date: 20200714
  Serious: Yes (Hospitalization)
  Sender: FDA-Public Use
  Company Number: None

PATIENT
  Age: 84 Year
  Sex: Male

DRUGS (1)
  1. SEMAGLUTIDE (SEMAGLUTIDE 0.5MG/0.375ML INJ, SOLN, PEN, 1.5ML) [Suspect]
     Active Substance: SEMAGLUTIDE
     Indication: DIABETES MELLITUS
     Dosage: ?          OTHER STRENGTH:0.5MG/0.375ML, 1.5;?
     Route: 058
     Dates: start: 20200304, end: 20200529

REACTIONS (5)
  - Taste disorder [None]
  - Vomiting [None]
  - Nausea [None]
  - Fatigue [None]
  - Abdominal pain [None]

NARRATIVE: CASE EVENT DATE: 20200529
